FAERS Safety Report 9470413 (Version 1)
Quarter: 2013Q3

REPORT INFORMATION
  Report Type: Spontaneous
  Country: US (occurrence: US)
  Receive Date: 20130822
  Receipt Date: 20130822
  Transmission Date: 20140515
  Serious: No
  Sender: FDA-Public Use
  Company Number: US-SANOFI-AVENTIS-2012SA041322

PATIENT
  Age: 66 Year
  Sex: Female
  Weight: 70.45 kg

DRUGS (4)
  1. MULTAQ [Suspect]
     Indication: ATRIAL FIBRILLATION
     Route: 048
     Dates: start: 20120412, end: 20120521
  2. UNKNOWDRUG [Concomitant]
  3. DILTIAZEM [Concomitant]
     Indication: HYPERTENSION
  4. WARFARIN [Concomitant]
     Indication: ATRIAL FIBRILLATION
     Dates: start: 2002

REACTIONS (3)
  - Urticaria [Recovering/Resolving]
  - Rash [Recovered/Resolved]
  - Extra dose administered [Unknown]
